FAERS Safety Report 22201980 (Version 1)
Quarter: 2023Q2

REPORT INFORMATION
  Report Type: Spontaneous
  Country: US (occurrence: US)
  Receive Date: 20230412
  Receipt Date: 20230412
  Transmission Date: 20230721
  Serious: Yes (Other)
  Sender: FDA-Public Use
  Company Number: US-BAYER-2023A044446

PATIENT
  Sex: Male

DRUGS (6)
  1. ASPIRIN [Suspect]
     Active Substance: ASPIRIN
  2. ATENOLOL [Concomitant]
     Active Substance: ATENOLOL
  3. FUROSEMIDE [Concomitant]
     Active Substance: FUROSEMIDE
  4. BUDESONIDE [Concomitant]
     Active Substance: BUDESONIDE
  5. ALBUTEROL [Concomitant]
     Active Substance: ALBUTEROL
  6. UMECLIDINIUM [Concomitant]
     Active Substance: UMECLIDINIUM

REACTIONS (2)
  - Abdominal operation [None]
  - Haemorrhage [None]
